FAERS Safety Report 6536562-8 (Version None)
Quarter: 2010Q1

REPORT INFORMATION
  Report Type: 
  Country: None (occurrence: None)
  Receive Date: 20100106
  Receipt Date: 20100104
  Transmission Date: 20100710
  Serious: Yes (Hospitalization)
  Sender: FDA-Public Use
  Company Number: 2010SP000137

PATIENT
  Age: 9 Year
  Sex: Female

DRUGS (2)
  1. DESLORATADINE [Suspect]
     Indication: NASOPHARYNGITIS
     Dosage: PO
     Route: 048
     Dates: start: 20091127, end: 20091127
  2. TUSSIDANE (DEXTROMETHOPRPHAN HYDROBROMIDE) [Suspect]
     Indication: NASOPHARYNGITIS
     Dates: start: 20091127, end: 20091127

REACTIONS (1)
  - HALLUCINATION, VISUAL [None]
